FAERS Safety Report 17038662 (Version 15)
Quarter: 2021Q2

REPORT INFORMATION
  Report Type: Spontaneous
  Country: CZ (occurrence: CZ)
  Receive Date: 20191115
  Receipt Date: 20210629
  Transmission Date: 20210716
  Serious: Yes (Hospitalization, Other)
  Sender: FDA-Public Use
  Company Number: NVSC2019CZ033841

PATIENT
  Age: 67 Year
  Sex: Female
  Weight: 78 kg

DRUGS (19)
  1. ZOLPIDEM [Suspect]
     Active Substance: ZOLPIDEM TARTRATE
     Indication: INSOMNIA
     Dosage: 3RD YEAR, 5 MG
     Route: 065
  2. ZOLPIDEM [Suspect]
     Active Substance: ZOLPIDEM TARTRATE
     Indication: MIDDLE INSOMNIA
     Dosage: 1ST YEAR: ONE TABLET OF ZOLPIDEM 10 MG PER NIGHT CORRECTED HER SLEEP WELL FOR ABOUT A YEAR
     Route: 048
  3. ZOLPIDEM [Suspect]
     Active Substance: ZOLPIDEM TARTRATE
     Indication: ANXIETY
     Dosage: 3RD YEAR, 30 MG QD
     Route: 048
  4. KOFFEIN [Concomitant]
     Indication: BACK PAIN
     Dosage: UNK
     Route: 065
  5. PARACETAMOL [Concomitant]
     Active Substance: ACETAMINOPHEN
     Indication: BACK PAIN
  6. GUAIPHENESIN [Concomitant]
     Active Substance: GUAIFENESIN
     Indication: MUSCLE RELAXANT THERAPY
  7. KOFFEIN [Concomitant]
     Indication: CENTRAL NERVOUS SYSTEM STIMULATION
  8. OXAZEPAM. [Concomitant]
     Active Substance: OXAZEPAM
     Indication: ANXIETY
     Dosage: 3RD YEAR:IN THE LAST YEAR BEFORE HER CURRENT HOSPITALIZATION, SHE INCREASED THE DOSE TO THREE TABLET
     Route: 048
  9. METFORMIN [Concomitant]
     Active Substance: METFORMIN HYDROCHLORIDE
     Indication: TYPE 2 DIABETES MELLITUS
     Dosage: SHE MANAGED TO TAKE HER DIABETIC DIET AND MEDICATION REGULARLY
     Route: 065
  10. INSULIN [Concomitant]
     Active Substance: INSULIN NOS
     Indication: TYPE 2 DIABETES MELLITUS
     Dosage: SHE MANAGED TO TAKE HER DIABETIC DIET AND MEDICATION REGULARLY
     Route: 065
  11. GUAIPHENESIN [Concomitant]
     Active Substance: GUAIFENESIN
     Indication: ANXIOLYTIC THERAPY
  12. ZOLPIDEM [Suspect]
     Active Substance: ZOLPIDEM TARTRATE
     Indication: HYPOSOMNIA
     Dosage: 35 MG, QD (3.5 DF)  (THREE TABLETS A NIGHT + HALF A ZOLPIDEM TABLET)
     Route: 048
  13. ZOLPIDEM [Suspect]
     Active Substance: ZOLPIDEM TARTRATE
     Dosage: UP TO 30 MG
     Route: 065
  14. GUAIPHENESIN [Concomitant]
     Active Substance: GUAIFENESIN
     Indication: PRODUCTIVE COUGH
     Dosage: 1?2 TBL
     Route: 065
  15. PARACETAMOL [Concomitant]
     Active Substance: ACETAMINOPHEN
     Indication: ANALGESIC THERAPY
     Dosage: 1?2 TBL
     Route: 065
  16. PARACETAMOL [Concomitant]
     Active Substance: ACETAMINOPHEN
     Indication: PAIN
  17. GUAIPHENESIN [Concomitant]
     Active Substance: GUAIFENESIN
     Indication: BACK PAIN
  18. ZOLPIDEM [Suspect]
     Active Substance: ZOLPIDEM TARTRATE
     Indication: ANTIDEPRESSANT THERAPY
     Dosage: 2ND YEAR: INCREASING DOSE TO 20 MG DAILY AGAIN PROVIDED A CORRECTION FOR SLEEP FOR ANOTHER YEAR
     Route: 048
  19. GUAIPHENESIN [Concomitant]
     Active Substance: GUAIFENESIN
     Indication: PAIN

REACTIONS (21)
  - Bulimia nervosa [Unknown]
  - Psychomotor retardation [Recovered/Resolved]
  - Abulia [Unknown]
  - Anhedonia [Unknown]
  - Major depression [Recovered/Resolved]
  - Decreased appetite [Unknown]
  - Depressed mood [Recovering/Resolving]
  - Intentional product misuse [Unknown]
  - Psychomotor skills impaired [Unknown]
  - Depression [Recovered/Resolved]
  - Therapeutic product effect decreased [Unknown]
  - Fatigue [Recovered/Resolved]
  - Drug ineffective [Unknown]
  - Overdose [Unknown]
  - Anxiety [Unknown]
  - Insomnia [Unknown]
  - Terminal insomnia [Recovered/Resolved]
  - Drug tolerance [Unknown]
  - Suicidal ideation [Recovered/Resolved]
  - Anxiety [Recovered/Resolved]
  - Drug abuse [Unknown]
